FAERS Safety Report 21481062 (Version 1)
Quarter: 2022Q4

REPORT INFORMATION
  Report Type: Spontaneous
  Country: FR (occurrence: FR)
  Receive Date: 20221019
  Receipt Date: 20221019
  Transmission Date: 20230112
  Serious: Yes (Other)
  Sender: FDA-Public Use
  Company Number: None

PATIENT
  Age: 80 Year
  Sex: Female
  Weight: 86 kg

DRUGS (6)
  1. GENTAMICIN [Suspect]
     Active Substance: GENTAMICIN
     Indication: Escherichia bacteraemia
     Route: 065
     Dates: start: 20181202, end: 201812
  2. OFLOXACIN [Suspect]
     Active Substance: OFLOXACIN
     Indication: Escherichia bacteraemia
     Route: 065
     Dates: start: 201812, end: 201812
  3. FLAGYL [Suspect]
     Active Substance: METRONIDAZOLE\METRONIDAZOLE HYDROCHLORIDE
     Indication: Pneumonia aspiration
     Route: 042
     Dates: start: 20181225, end: 20190107
  4. BACTRIM [Suspect]
     Active Substance: SULFAMETHOXAZOLE\TRIMETHOPRIM
     Indication: Enterobacter infection
     Dosage: COMPRESSED
     Route: 048
     Dates: start: 20190107, end: 20190124
  5. CEFOTAXIME SODIUM [Suspect]
     Active Substance: CEFOTAXIME SODIUM
     Indication: Escherichia bacteraemia
     Route: 065
     Dates: start: 20181202, end: 20181218
  6. CEFOTAXIME SODIUM [Suspect]
     Active Substance: CEFOTAXIME SODIUM
     Route: 065
     Dates: start: 20181225, end: 20190107

REACTIONS (1)
  - Pseudomembranous colitis [Recovered/Resolved]

NARRATIVE: CASE EVENT DATE: 20190127
